FAERS Safety Report 15150885 (Version 2)
Quarter: 2019Q4

REPORT INFORMATION
  Report Type: Spontaneous
  Country: US (occurrence: US)
  Receive Date: 20180716
  Receipt Date: 20191004
  Transmission Date: 20200122
  Serious: Yes (Other)
  Sender: FDA-Public Use
  Company Number: US-SA-2018SA089733

PATIENT
  Age: 54 Year
  Sex: Female
  Weight: 126 kg

DRUGS (59)
  1. PARAPLATIN [Concomitant]
     Active Substance: CARBOPLATIN
     Dosage: 900 MG
     Route: 042
     Dates: start: 20151207, end: 20151207
  2. PARAPLATIN [Concomitant]
     Active Substance: CARBOPLATIN
     Dosage: 900 MG
     Route: 042
     Dates: start: 20151228, end: 20151228
  3. ONDANSETRON HCL [Concomitant]
     Active Substance: ONDANSETRON HYDROCHLORIDE
     Indication: VOMITING
     Dosage: 2 DF
     Route: 048
     Dates: start: 20151005, end: 20151005
  4. ONDANSETRON HCL [Concomitant]
     Active Substance: ONDANSETRON HYDROCHLORIDE
     Dosage: 2 DF
     Route: 048
     Dates: start: 20160118, end: 20160118
  5. PROCHLORPERAZINE MALEATE. [Concomitant]
     Active Substance: PROCHLORPERAZINE MALEATE
     Indication: VOMITING
     Dosage: 1 DF (EVERY 4 TO 6 HOURS AS NEEDED)
     Route: 048
     Dates: start: 20151207, end: 20160616
  6. DECADRON [Concomitant]
     Active Substance: DEXAMETHASONE
     Dosage: 2 DF, BID (FOR 5 DOSES)
     Dates: start: 20151228, end: 20160208
  7. SODIUM CHLORIDE. [Concomitant]
     Active Substance: SODIUM CHLORIDE
     Dosage: 500 ML
     Route: 042
     Dates: start: 20151228, end: 20151231
  8. LEVOTHYROXINE. [Concomitant]
     Active Substance: LEVOTHYROXINE
     Dosage: UNK UNK, UNK
     Route: 065
     Dates: start: 1999
  9. TAXOTERE [Suspect]
     Active Substance: DOCETAXEL
     Dosage: 75 MG/M2, Q3W
     Route: 042
     Dates: start: 20151207, end: 20151207
  10. TAXOTERE [Suspect]
     Active Substance: DOCETAXEL
     Dosage: 186.8 MG/M2, Q3W
     Route: 042
     Dates: start: 20160118, end: 20160118
  11. PARAPLATIN [Concomitant]
     Active Substance: CARBOPLATIN
     Dosage: 900 MG
     Route: 042
     Dates: start: 20151026, end: 20151026
  12. NEUPOGEN [Concomitant]
     Active Substance: FILGRASTIM
     Dosage: 0.48 MG, QD
     Route: 058
     Dates: start: 20151207, end: 20160208
  13. PROCHLORPERAZINE MALEATE. [Concomitant]
     Active Substance: PROCHLORPERAZINE MALEATE
     Dosage: 1 DF, EVERY 4 TO 6 HOURS AS NEEDED
     Route: 048
     Dates: start: 20151207, end: 20160118
  14. SODIUM CHLORIDE. [Concomitant]
     Active Substance: SODIUM CHLORIDE
     Dosage: 500 ML
     Route: 042
     Dates: start: 20160118, end: 20160121
  15. ASPIRIN [ACETYLSALICYLIC ACID] [Concomitant]
     Active Substance: ASPIRIN
     Dosage: UNK UNK, UNK
     Route: 065
  16. ATENOLOL. [Concomitant]
     Active Substance: ATENOLOL
     Dosage: UNK UNK, UNK
     Route: 065
     Dates: start: 2010
  17. TAXOTERE [Suspect]
     Active Substance: DOCETAXEL
     Dosage: 75 KG, Q3W
     Route: 042
     Dates: start: 20151026, end: 20151026
  18. TAXOTERE [Suspect]
     Active Substance: DOCETAXEL
     Dosage: 75 MG/M2, Q3W
     Route: 042
     Dates: start: 20151228, end: 20151228
  19. PARAPLATIN [Concomitant]
     Active Substance: CARBOPLATIN
     Dosage: 900 UNK
     Route: 042
     Dates: start: 20160118, end: 20160118
  20. NEUPOGEN [Concomitant]
     Active Substance: FILGRASTIM
     Dosage: 0.48 MG, QD
     Route: 058
     Dates: start: 20151005, end: 20160208
  21. ONDANSETRON HCL [Concomitant]
     Active Substance: ONDANSETRON HYDROCHLORIDE
     Dosage: 1 DF, Q12H
     Route: 048
     Dates: start: 20151116, end: 20160616
  22. ONDANSETRON HCL [Concomitant]
     Active Substance: ONDANSETRON HYDROCHLORIDE
     Dosage: 2 DF
     Route: 048
     Dates: start: 20151207, end: 20151207
  23. ONDANSETRON HCL [Concomitant]
     Active Substance: ONDANSETRON HYDROCHLORIDE
     Dosage: 2 DF
     Route: 048
     Dates: start: 20151228, end: 20151228
  24. DECADRON [Concomitant]
     Active Substance: DEXAMETHASONE
     Dosage: 2 DF (ONE TIME)
     Route: 048
     Dates: start: 20151207, end: 20151207
  25. SODIUM CHLORIDE. [Concomitant]
     Active Substance: SODIUM CHLORIDE
     Dosage: 500 ML
     Route: 042
     Dates: start: 20151116, end: 20151119
  26. TAXOTERE [Suspect]
     Active Substance: DOCETAXEL
     Dosage: 75 MG/M2, Q3W
     Route: 042
     Dates: start: 20151116, end: 20151116
  27. HERCEPTIN [Concomitant]
     Active Substance: TRASTUZUMAB
     Dosage: 6 MG/KG
     Route: 042
     Dates: start: 20151207, end: 20151207
  28. HERCEPTIN [Concomitant]
     Active Substance: TRASTUZUMAB
     Dosage: 6 MG/KG
     Route: 042
     Dates: start: 20151228, end: 20151228
  29. DECADRON [Concomitant]
     Active Substance: DEXAMETHASONE
     Dosage: 2 DF, BID (FOR 5 DOSES. START IN THE MORNING, ONE DAY PRIOR TO DOCETAXEL)
     Route: 048
     Dates: start: 20151005, end: 20151010
  30. DECADRON [Concomitant]
     Active Substance: DEXAMETHASONE
     Dosage: 2 DF, BID (FOR 5 DOSES)
     Route: 048
     Dates: start: 20151207, end: 20151225
  31. SODIUM CHLORIDE. [Concomitant]
     Active Substance: SODIUM CHLORIDE
     Dosage: 500 ML
     Route: 042
     Dates: start: 20151005, end: 20151006
  32. SODIUM CHLORIDE. [Concomitant]
     Active Substance: SODIUM CHLORIDE
     Dosage: 500 ML
     Route: 042
     Dates: start: 20151026, end: 20151026
  33. ZOFRAN [Concomitant]
     Active Substance: ONDANSETRON HYDROCHLORIDE
     Dosage: 16 MG, TOTAL
     Route: 048
     Dates: start: 20151005, end: 20151005
  34. CATHFLO ACTIVASE [Concomitant]
     Active Substance: ALTEPLASE
     Dosage: 2 MG
     Route: 042
     Dates: start: 20151116, end: 20151116
  35. PARAPLATIN [Concomitant]
     Active Substance: CARBOPLATIN
     Indication: PRODUCT USED FOR UNKNOWN INDICATION
     Dosage: 900 MG
     Route: 042
     Dates: start: 20151005, end: 20151005
  36. HERCEPTIN [Concomitant]
     Active Substance: TRASTUZUMAB
     Dosage: 6 MG/KG
     Route: 042
     Dates: start: 20160118, end: 20160118
  37. ONDANSETRON HCL [Concomitant]
     Active Substance: ONDANSETRON HYDROCHLORIDE
     Indication: NAUSEA
     Dosage: 1 DF, Q12H
     Route: 048
     Dates: start: 20151005, end: 20160616
  38. ONDANSETRON HCL [Concomitant]
     Active Substance: ONDANSETRON HYDROCHLORIDE
     Dosage: 1 DF, Q12D
     Route: 048
     Dates: start: 20151207, end: 20160616
  39. SODIUM CHLORIDE. [Concomitant]
     Active Substance: SODIUM CHLORIDE
     Dosage: 1000 ML
     Route: 042
     Dates: start: 20151120, end: 20151123
  40. ALLEGRA [Concomitant]
     Active Substance: FEXOFENADINE HYDROCHLORIDE
     Indication: HYPERSENSITIVITY
     Dosage: UNK UNK, UNK
     Route: 065
  41. TAXOTERE [Suspect]
     Active Substance: DOCETAXEL
     Indication: BREAST CANCER FEMALE
     Dosage: 186.8 MG/M2, Q3W
     Route: 042
     Dates: start: 20151005, end: 20151005
  42. HERCEPTIN [Concomitant]
     Active Substance: TRASTUZUMAB
     Indication: PRODUCT USED FOR UNKNOWN INDICATION
     Dosage: 8 MG/KG
     Route: 042
     Dates: start: 20151005, end: 20151005
  43. HERCEPTIN [Concomitant]
     Active Substance: TRASTUZUMAB
     Dosage: 6 MG/KG
     Route: 042
     Dates: start: 20151026, end: 20151026
  44. HERCEPTIN [Concomitant]
     Active Substance: TRASTUZUMAB
     Dosage: 6 MG/KG
     Route: 042
     Dates: start: 20151116, end: 20151116
  45. ARIMIDEX [Concomitant]
     Active Substance: ANASTROZOLE
     Indication: PRODUCT USED FOR UNKNOWN INDICATION
     Dosage: UNK
     Route: 065
  46. SYNTHROID [Concomitant]
     Active Substance: LEVOTHYROXINE SODIUM
     Indication: PRODUCT USED FOR UNKNOWN INDICATION
     Dosage: UNK
     Route: 065
  47. NEUPOGEN [Concomitant]
     Active Substance: FILGRASTIM
     Dosage: 0.48 MG, QD
     Route: 058
     Dates: start: 20160118, end: 20160208
  48. ONDANSETRON HCL [Concomitant]
     Active Substance: ONDANSETRON HYDROCHLORIDE
     Dosage: 2 DF
     Route: 048
     Dates: start: 20151026, end: 20151026
  49. DECADRON [Concomitant]
     Active Substance: DEXAMETHASONE
     Dosage: 2 DF, BID (FOR 5 DOSES)
     Dates: start: 20151228, end: 20151231
  50. PARAPLATIN [Concomitant]
     Active Substance: CARBOPLATIN
     Dosage: 900 MG
     Route: 042
     Dates: start: 20151116, end: 20151116
  51. NEUPOGEN [Concomitant]
     Active Substance: FILGRASTIM
     Dosage: 0.48 MG, QD
     Route: 058
     Dates: start: 20151228, end: 20160208
  52. ONDANSETRON HCL [Concomitant]
     Active Substance: ONDANSETRON HYDROCHLORIDE
     Dosage: 2 DF
     Route: 048
     Dates: start: 20151116, end: 20151116
  53. PROCHLORPERAZINE MALEATE. [Concomitant]
     Active Substance: PROCHLORPERAZINE MALEATE
     Indication: NAUSEA
     Dosage: 1 DF, EVERY 4 TO 6 HOURS AS NEEDED
     Route: 048
     Dates: start: 20151005, end: 20151207
  54. CETIRIZINE [Concomitant]
     Active Substance: CETIRIZINE HYDROCHLORIDE
     Dosage: 10 MG, PRN
     Route: 048
     Dates: start: 20151005, end: 20151005
  55. NEUPOGEN [Concomitant]
     Active Substance: FILGRASTIM
     Dosage: 0.48 MG, QD
     Route: 058
     Dates: start: 20151026, end: 20160208
  56. NEUPOGEN [Concomitant]
     Active Substance: FILGRASTIM
     Dosage: 0.48 MG, QD
     Route: 058
     Dates: start: 20151116, end: 20160208
  57. SODIUM CHLORIDE. [Concomitant]
     Active Substance: SODIUM CHLORIDE
     Dosage: 500 ML
     Route: 042
     Dates: start: 20151207, end: 20151210
  58. ACETAMINOPHEN. [Concomitant]
     Active Substance: ACETAMINOPHEN
     Dosage: 2 DF, TOTAL
     Route: 048
     Dates: start: 20151005, end: 20151005
  59. MELOXICAM. [Concomitant]
     Active Substance: MELOXICAM
     Dosage: 7.5 MG, QD
     Route: 048
     Dates: start: 20140320

REACTIONS (1)
  - Alopecia [Recovering/Resolving]

NARRATIVE: CASE EVENT DATE: 201607
